FAERS Safety Report 7554870-9 (Version None)
Quarter: 2011Q2

REPORT INFORMATION
  Report Type: 
  Country: None (occurrence: None)
  Receive Date: 20110615
  Receipt Date: 20110615
  Transmission Date: 20111010
  Serious: Yes (Hospitalization)
  Sender: FDA-Public Use
  Company Number: None

PATIENT
  Sex: Female
  Weight: 61.2 kg

DRUGS (2)
  1. CISPLATIN [Suspect]
     Dosage: 210 MG
     Dates: end: 20110613
  2. TAXOL [Suspect]
     Dosage: 420 MG
     Dates: end: 20110613

REACTIONS (5)
  - HYPOPHAGIA [None]
  - ORTHOSTATIC HEART RATE RESPONSE INCREASED [None]
  - MALAISE [None]
  - ASTHENIA [None]
  - BLOOD PRESSURE ORTHOSTATIC ABNORMAL [None]
